FAERS Safety Report 6747893-0 (Version None)
Quarter: 2010Q2

REPORT INFORMATION
  Report Type: 
  Country: None (occurrence: None)
  Receive Date: 20100528
  Receipt Date: 20100518
  Transmission Date: 20101027
  Serious: Yes (Hospitalization, Other)
  Sender: FDA-Public Use
  Company Number: CA-ABBOTT-10P-028-0645869-00

PATIENT
  Sex: Female
  Weight: 54.48 kg

DRUGS (6)
  1. HUMIRA [Suspect]
     Indication: CROHN'S DISEASE
     Route: 058
     Dates: start: 20071220
  2. COUMADIN [Concomitant]
     Indication: PORTAL VEIN THROMBOSIS
     Route: 058
     Dates: start: 20070101
  3. POTASSIUM [Concomitant]
     Indication: MINERAL SUPPLEMENTATION
     Route: 048
  4. MULTI-VITAMIN [Concomitant]
     Indication: VITAMIN SUPPLEMENTATION
     Route: 048
  5. VIT B12 [Concomitant]
     Indication: VITAMIN SUPPLEMENTATION
     Route: 030
  6. CALCIUM CARBONATE [Concomitant]
     Indication: MINERAL SUPPLEMENTATION
     Route: 048

REACTIONS (5)
  - ANAL FISSURE [None]
  - ANAL INFLAMMATION [None]
  - ASTHENIA [None]
  - CROHN'S DISEASE [None]
  - FATIGUE [None]
